FAERS Safety Report 18272558 (Version 1)
Quarter: 2020Q3

REPORT INFORMATION
  Report Type: Spontaneous
  Country: US (occurrence: US)
  Receive Date: 20200915
  Receipt Date: 20200915
  Transmission Date: 20201103
  Serious: Yes (Hospitalization)
  Sender: FDA-Public Use
  Company Number: None

PATIENT
  Age: 73 Year
  Sex: Female

DRUGS (1)
  1. XGEVA [Suspect]
     Active Substance: DENOSUMAB
     Indication: HYPERCALCAEMIA
     Dosage: ?          OTHER DOSE:120MG/1.7ML;?
     Route: 058
     Dates: start: 201807

REACTIONS (3)
  - Urinary tract infection [None]
  - Nephrolithiasis [None]
  - Blood calcium increased [None]

NARRATIVE: CASE EVENT DATE: 20200529
